FAERS Safety Report 6983816-7 (Version None)
Quarter: 2010Q3

REPORT INFORMATION
  Report Type: 
  Country: None (occurrence: None)
  Receive Date: 20100914
  Receipt Date: 20050124
  Transmission Date: 20110219
  Serious: Yes (Hospitalization)
  Sender: FDA-Public Use
  Company Number: US-WYE-H07164608

PATIENT
  Age: 87 Year
  Sex: Male
  Weight: 35.4 kg

DRUGS (7)
  1. ADVIL LIQUI-GELS [Suspect]
     Dosage: UNKNOWN
     Route: 065
  2. BACTRIM DS [Concomitant]
     Dosage: UNKNOWN
     Route: 048
  3. DORZOLAMIDE [Concomitant]
     Dosage: UNKNOWN
     Route: 047
  4. TIMOLOL MALEATE [Concomitant]
     Dosage: UNKNOWN
     Route: 047
  5. PILOCARPINE HYDROCHLORIDE [Concomitant]
     Dosage: UNKNOWN
     Route: 047
  6. VERAPAMIL HYDROCHLORIDE [Concomitant]
     Route: 048
  7. ACETAMINOPHEN [Concomitant]
     Dosage: 500 MG TABLET
     Route: 048

REACTIONS (2)
  - DUODENAL ULCER [None]
  - GASTROINTESTINAL HAEMORRHAGE [None]
